FAERS Safety Report 9641298 (Version 1)
Quarter: 2013Q4

REPORT INFORMATION
  Report Type: Spontaneous
  Country: CA (occurrence: CA)
  Receive Date: 20131023
  Receipt Date: 20131023
  Transmission Date: 20140711
  Serious: Yes (Life-Threatening, Hospitalization)
  Sender: FDA-Public Use
  Company Number: CA-VERTEX PHARMACEUTICALS INC-2013-010550

PATIENT
  Age: 58 Year
  Sex: Male

DRUGS (3)
  1. INCIVEK [Suspect]
     Indication: HEPATITIS C
  2. PEGASYS RBV [Suspect]
     Indication: HEPATITIS C
     Dosage: 1000 MG, QD
     Route: 048
  3. PEGASYS RBV [Suspect]
     Indication: HEPATITIS C
     Dosage: 180 ?G, UNK
     Route: 058

REACTIONS (7)
  - Loss of consciousness [Not Recovered/Not Resolved]
  - Chest pain [Not Recovered/Not Resolved]
  - Dizziness [Not Recovered/Not Resolved]
  - Contusion [Not Recovered/Not Resolved]
  - Pneumonia [Not Recovered/Not Resolved]
  - Renal disorder [Not Recovered/Not Resolved]
  - Generalised oedema [Not Recovered/Not Resolved]
